FAERS Safety Report 12541342 (Version 1)
Quarter: 2016Q3

REPORT INFORMATION
  Report Type: Spontaneous
  Country: US (occurrence: US)
  Receive Date: 20160708
  Receipt Date: 20160708
  Transmission Date: 20161109
  Serious: Yes (Other)
  Sender: FDA-Public Use
  Company Number: US-STANDARD HOMEOPATHIC COMPANY-1054822

PATIENT
  Age: 74 Year
  Sex: Female

DRUGS (3)
  1. HYLANDS LEG CRAMPS [Suspect]
     Active Substance: HOMEOPATHICS
     Indication: PAIN
     Route: 048
     Dates: start: 20160624, end: 20160625
  2. HYLANDS LEG CRAMPS [Suspect]
     Active Substance: HOMEOPATHICS
     Indication: MUSCULOSKELETAL STIFFNESS
     Route: 048
     Dates: start: 20160624, end: 20160625
  3. HYLANDS LEG CRAMPS [Suspect]
     Active Substance: HOMEOPATHICS
     Indication: BODY TEMPERATURE INCREASED
     Route: 048
     Dates: start: 20160624, end: 20160625

REACTIONS (3)
  - Dyspnoea [None]
  - Hyperventilation [None]
  - Oxygen saturation decreased [None]

NARRATIVE: CASE EVENT DATE: 20160625
